FAERS Safety Report 10776945 (Version 6)
Quarter: 2019Q3

REPORT INFORMATION
  Report Type: Report from Study
  Country: AU (occurrence: AU)
  Receive Date: 20150209
  Receipt Date: 20190822
  Transmission Date: 20191004
  Serious: Yes (Other)
  Sender: FDA-Public Use
  Company Number: PHHY2014AU159701

PATIENT
  Age: 39 Year
  Sex: Male
  Weight: 138 kg

DRUGS (3)
  1. GILENYA [Suspect]
     Active Substance: FINGOLIMOD HYDROCHLORIDE
     Dosage: 0.5 MG, QD
     Route: 048
     Dates: start: 20150414
  2. GILENYA [Suspect]
     Active Substance: FINGOLIMOD HYDROCHLORIDE
     Indication: MULTIPLE SCLEROSIS
     Dosage: 0.5 MG, QD
     Route: 048
     Dates: start: 20140923, end: 20150113
  3. SYMBICORT [Concomitant]
     Active Substance: BUDESONIDE\FORMOTEROL FUMARATE DIHYDRATE
     Indication: ASTHMA
     Dosage: 1 DF (PUFF), PRN
     Route: 065
     Dates: start: 2013

REACTIONS (37)
  - Vomiting [Recovered/Resolved]
  - Nasopharyngitis [Unknown]
  - Nasopharyngitis [Recovered/Resolved]
  - Paraesthesia [Not Recovered/Not Resolved]
  - Meniscus injury [Recovered/Resolved]
  - Sebaceous hyperplasia [Unknown]
  - Pain [Unknown]
  - Blood alkaline phosphatase increased [Unknown]
  - Fatigue [Unknown]
  - Vitamin D deficiency [Not Recovered/Not Resolved]
  - Burning sensation [Unknown]
  - Anxiety [Unknown]
  - Photopsia [Unknown]
  - Abdominal pain upper [Recovered/Resolved]
  - Gastroenteritis [Recovered/Resolved]
  - Memory impairment [Unknown]
  - Balance disorder [Unknown]
  - Diarrhoea [Unknown]
  - Visual impairment [Recovered/Resolved]
  - Muscle strain [Recovered/Resolved]
  - Contusion [Recovered/Resolved]
  - Melanocytic naevus [Unknown]
  - Oedema peripheral [Recovered/Resolved]
  - Weight decreased [Recovered/Resolved]
  - Hypoaesthesia [Unknown]
  - Monocyte count increased [Unknown]
  - Viral infection [Recovered/Resolved]
  - Influenza [Recovered/Resolved]
  - Central nervous system lesion [Unknown]
  - Bowel movement irregularity [Unknown]
  - Arthralgia [Unknown]
  - Sleep apnoea syndrome [Unknown]
  - Neoplasm skin [Unknown]
  - Depression [Unknown]
  - Hepatic function abnormal [Not Recovered/Not Resolved]
  - Limb discomfort [Recovered/Resolved]
  - Influenza [Unknown]

NARRATIVE: CASE EVENT DATE: 20140923
